FAERS Safety Report 24667740 (Version 1)
Quarter: 2024Q4

REPORT INFORMATION
  Report Type: Spontaneous
  Country: ES (occurrence: ES)
  Receive Date: 20241127
  Receipt Date: 20241127
  Transmission Date: 20250114
  Serious: Yes (Other)
  Sender: AUROBINDO
  Company Number: ES-AMGEN-ESPSP2013083251

PATIENT
  Sex: Female

DRUGS (5)
  1. DOXORUBICIN [Suspect]
     Active Substance: DOXORUBICIN
     Indication: Breast cancer
     Dosage: 60 MILLIGRAM/SQ. METER [60 MG/M2, UNK (4 CYCLES) || DOSIS UNIDAD FRECUENCIA: 60 MG/M2-MILIGRAMOS/MET
     Route: 065
  2. DOCETAXEL [Suspect]
     Active Substance: DOCETAXEL
     Indication: Breast cancer
     Dosage: 100 MILLIGRAM/SQ. METER [100 MG/M2, 1 IN 3 WK || DOSIS UNIDAD FRECUENCIA: 100 MG/M2-MILIGRAMOS/METRO
     Route: 065
  3. CYCLOPHOSPHAMIDE [Suspect]
     Active Substance: CYCLOPHOSPHAMIDE
     Indication: Breast cancer
     Dosage: 600 MILLIGRAM/SQ. METER [600 MG/M2, 1 IN 2 WK || DOSIS UNIDAD FRECUENCIA: 600 MG/M2-MILIGRAMOS/METRO
     Route: 065
  4. FILGRASTIM [Suspect]
     Active Substance: FILGRASTIM
     Indication: Breast cancer
     Dosage: 5 MILLIGRAM/KILOGRAM [5 MG/KG, (DAYS 3 TO 10 OF EACH CYCLE) || DOSIS UNIDAD FRECUENCIA: 5 MG/KG-MILI
     Route: 065
  5. TRASTUZUMAB [Suspect]
     Active Substance: TRASTUZUMAB
     Indication: Breast cancer
     Dosage: 6 MILLIGRAM/KILOGRAM [6 MG/KG, 1 IN 3 WK (LOADING DOSE OF 8 MG PER KG) || DOSIS UNIDAD FRECUENCIA: 6
     Route: 065

REACTIONS (6)
  - Asthenia [Unknown]
  - Febrile neutropenia [Unknown]
  - Palmar-plantar erythrodysaesthesia syndrome [Unknown]
  - Nausea [Unknown]
  - Neutropenia [Unknown]
  - Vomiting [Unknown]
